FAERS Safety Report 8957050 (Version 1)
Quarter: 2012Q4

REPORT INFORMATION
  Report Type: 
  Country: AU (occurrence: AU)
  Receive Date: 20121211
  Receipt Date: 20121211
  Transmission Date: 20130627
  Serious: Yes (Other)
  Sender: FDA-Public Use
  Company Number: AU-ROCHE-1161651

PATIENT
  Age: 65 Year
  Sex: Female

DRUGS (6)
  1. TARCEVA [Suspect]
     Indication: METASTATIC NEOPLASM
     Route: 065
  2. CARBOPLATIN [Concomitant]
  3. PACLITAXEL [Concomitant]
  4. PEMETREXED [Concomitant]
  5. RAD001 [Concomitant]
  6. AVASTIN [Suspect]
     Indication: METASTATIC NEOPLASM
     Route: 065

REACTIONS (1)
  - Disease progression [Unknown]
